APPROVED DRUG PRODUCT: PROMETHAZINE WITH CODEINE
Active Ingredient: CODEINE PHOSPHATE; PROMETHAZINE HYDROCHLORIDE
Strength: 10MG/5ML;6.25MG/5ML
Dosage Form/Route: SYRUP;ORAL
Application: A040650 | Product #001
Applicant: PHARMACEUTICAL ASSOCIATES INC
Approved: Jan 31, 2006 | RLD: No | RS: No | Type: DISCN